FAERS Safety Report 6210052-4 (Version None)
Quarter: 2009Q2

REPORT INFORMATION
  Report Type: 
  Country: None (occurrence: None)
  Receive Date: 20090601
  Receipt Date: 20090521
  Transmission Date: 20091009
  Serious: Yes (Other)
  Sender: FDA-Public Use
  Company Number: US-PFIZER INC-2005115893

PATIENT
  Sex: Female
  Weight: 74 kg

DRUGS (6)
  1. PROVERA [Suspect]
     Indication: HORMONE REPLACEMENT THERAPY
     Dosage: 2.5 MG, UNK
     Route: 048
     Dates: start: 19840101, end: 19940101
  2. MEDROXYPROGESTERONE AND MEDROXYPROGESTERONE ACETATE [Suspect]
     Indication: HORMONE REPLACEMENT THERAPY
     Route: 048
  3. PREMARIN [Suspect]
     Indication: HORMONE REPLACEMENT THERAPY
  4. PREMPRO [Suspect]
     Indication: HORMONE REPLACEMENT THERAPY
     Dosage: 0.625/2.5 MG
     Dates: start: 19950101, end: 19980701
  5. ESTROGENS [Suspect]
     Indication: HORMONE REPLACEMENT THERAPY
     Dosage: UNK
     Dates: start: 19840101, end: 19940101
  6. DOXEPIN [Concomitant]
     Indication: DEPRESSION
     Dosage: 25 MG, 1X/DAY
     Dates: start: 19800101

REACTIONS (1)
  - BREAST CANCER FEMALE [None]
